FAERS Safety Report 20545722 (Version 2)
Quarter: 2023Q2

REPORT INFORMATION
  Report Type: Spontaneous
  Country: US (occurrence: US)
  Receive Date: 20220303
  Receipt Date: 20230421
  Transmission Date: 20230721
  Serious: No
  Sender: FDA-Public Use
  Company Number: US-ALLERGAN-2142734US

PATIENT
  Age: 72 Year
  Sex: Female

DRUGS (4)
  1. RESTASIS [Suspect]
     Active Substance: CYCLOSPORINE
     Indication: Dry eye
     Dosage: 2 GTT, BID
     Route: 047
     Dates: start: 20211112, end: 20211113
  2. RESTASIS [Suspect]
     Active Substance: CYCLOSPORINE
     Indication: Meibomian gland dysfunction
  3. OMEPRAZOLE [Concomitant]
     Active Substance: OMEPRAZOLE
     Indication: Gastrooesophageal reflux disease
     Dosage: 1 DF, QD
     Route: 048
  4. UNSPECIFIED INGREDIENT [Concomitant]
     Active Substance: UNSPECIFIED INGREDIENT
     Indication: Blood pressure measurement

REACTIONS (6)
  - Rash [Recovered/Resolved]
  - Dyspnoea [Recovered/Resolved]
  - Rhinorrhoea [Recovered/Resolved]
  - Eye irritation [Recovered/Resolved]
  - Drug hypersensitivity [Not Recovered/Not Resolved]
  - Eye inflammation [Recovered/Resolved]

NARRATIVE: CASE EVENT DATE: 20211112
